FAERS Safety Report 7758546-4 (Version None)
Quarter: 2011Q3

REPORT INFORMATION
  Report Type: 
  Country: None (occurrence: None)
  Receive Date: 20110919
  Receipt Date: 20110906
  Transmission Date: 20111222
  Serious: Yes (Hospitalization)
  Sender: FDA-Public Use
  Company Number: US-ELI_LILLY_AND_COMPANY-US201105002628

PATIENT
  Sex: Male

DRUGS (11)
  1. ASPIRIN [Concomitant]
  2. SIMVASTATIN [Concomitant]
  3. FORTEO [Suspect]
     Indication: OSTEOPOROSIS
     Dosage: 20 UG, QD
     Dates: start: 20110505
  4. TAMSULOSIN HCL [Concomitant]
  5. AVODART [Concomitant]
  6. OXYBUTYNIN [Concomitant]
  7. IPRATROPIUM BROMIDE [Concomitant]
  8. CARBAMAZEPINE [Concomitant]
  9. FORTEO [Suspect]
     Dosage: 20 UG, QD
     Route: 065
  10. FORTEO [Suspect]
     Dosage: 20 UG, QD
  11. NADOLOL [Concomitant]

REACTIONS (3)
  - INJECTION SITE HAEMATOMA [None]
  - GALLBLADDER DISORDER [None]
  - DIZZINESS [None]
